FAERS Safety Report 12936092 (Version 1)
Quarter: 2016Q4

REPORT INFORMATION
  Report Type: Spontaneous
  Country: US (occurrence: US)
  Receive Date: 20161114
  Receipt Date: 20161114
  Transmission Date: 20170207
  Serious: Yes (Disabling, Other)
  Sender: FDA-Public Use
  Company Number: US-ROCHE-1852265

PATIENT
  Age: 93 Year
  Sex: Male
  Weight: 90.8 kg

DRUGS (14)
  1. AMLODIPINE [Concomitant]
     Active Substance: AMLODIPINE BESYLATE
  2. LUCENTIS [Suspect]
     Active Substance: RANIBIZUMAB
     Route: 050
     Dates: start: 2015
  3. EYLEA [Suspect]
     Active Substance: AFLIBERCEPT
     Dosage: RIGHT EYE
     Route: 031
  4. NORVASC [Concomitant]
     Active Substance: AMLODIPINE BESYLATE
  5. ASPIRIN. [Concomitant]
     Active Substance: ASPIRIN
  6. LUCENTIS [Suspect]
     Active Substance: RANIBIZUMAB
     Indication: NEOVASCULAR AGE-RELATED MACULAR DEGENERATION
     Route: 050
     Dates: start: 2006
  7. EYLEA [Suspect]
     Active Substance: AFLIBERCEPT
     Dosage: RIGHT EYE
     Route: 031
     Dates: start: 20160913
  8. EYLEA [Suspect]
     Active Substance: AFLIBERCEPT
     Dosage: RIGHT EYE
     Route: 031
     Dates: start: 20160412, end: 20160412
  9. PRESERVISION [Concomitant]
     Active Substance: MINERALS\VITAMINS
  10. BIOTIN [Concomitant]
     Active Substance: BIOTIN
  11. EYLEA [Suspect]
     Active Substance: AFLIBERCEPT
     Indication: NEOVASCULAR AGE-RELATED MACULAR DEGENERATION
     Dosage: LEFT EYE
     Route: 050
     Dates: start: 20140519, end: 20141202
  12. SYNTHROID [Concomitant]
     Active Substance: LEVOTHYROXINE SODIUM
  13. SAW PALMETTO [Concomitant]
     Active Substance: SAW PALMETTO
  14. XALATAN [Concomitant]
     Active Substance: LATANOPROST

REACTIONS (8)
  - Endophthalmitis [Unknown]
  - Retinal detachment [Unknown]
  - Anxiety [Unknown]
  - Visual impairment [Unknown]
  - Blindness unilateral [Not Recovered/Not Resolved]
  - Ocular discomfort [Unknown]
  - Vision blurred [Unknown]
  - Intraocular pressure increased [Unknown]

NARRATIVE: CASE EVENT DATE: 20141203
